FAERS Safety Report 20568016 (Version 1)
Quarter: 2022Q1

REPORT INFORMATION
  Report Type: Spontaneous
  Country: CN (occurrence: None)
  Receive Date: 20220308
  Receipt Date: 20220308
  Transmission Date: 20220423
  Serious: Yes (Other)
  Sender: FDA-Public Use
  Company Number: 2022A097096

PATIENT
  Age: 53 Year
  Sex: Female
  Weight: 59 kg

DRUGS (1)
  1. TAGRISSO [Suspect]
     Active Substance: OSIMERTINIB
     Indication: Neoplasm malignant
     Route: 048
     Dates: start: 20210326, end: 20220226

REACTIONS (2)
  - Myelosuppression [Recovering/Resolving]
  - Pigmentation disorder [Recovering/Resolving]

NARRATIVE: CASE EVENT DATE: 20220223
